FAERS Safety Report 7809398-5 (Version None)
Quarter: 2011Q4

REPORT INFORMATION
  Report Type: 
  Country: None (occurrence: None)
  Receive Date: 20111012
  Receipt Date: 20111003
  Transmission Date: 20120403
  Serious: Yes (Hospitalization)
  Sender: FDA-Public Use
  Company Number: US-SANOFI-AVENTIS-2011SA065335

PATIENT
  Age: 83 Year
  Sex: Male

DRUGS (4)
  1. SOLOSTAR [Suspect]
     Dates: start: 20110101
  2. LANTUS [Suspect]
     Dosage: DOSE:10 UNIT(S)
     Route: 058
     Dates: start: 20110101
  3. ARICEPT [Suspect]
     Route: 065
  4. EXENATIDE [Concomitant]

REACTIONS (3)
  - LUNG NEOPLASM MALIGNANT [None]
  - RENAL DISORDER [None]
  - BLOOD GLUCOSE INCREASED [None]
